FAERS Safety Report 8610221-X (Version None)
Quarter: 2012Q3

REPORT INFORMATION
  Report Type: 
  Country: None (occurrence: None)
  Receive Date: 20120822
  Receipt Date: 20120821
  Transmission Date: 20120928
  Serious: Yes (Hospitalization, Other)
  Sender: FDA-Public Use
  Company Number: US-AMGEN-USASP2012036038

PATIENT
  Age: 56 Year
  Sex: Female

DRUGS (6)
  1. METHOTREXATE [Concomitant]
     Dosage: 10 MG, QWK
  2. TRAZODONE HYDROCHLORIDE [Concomitant]
     Dosage: UNK
  3. ENBREL [Suspect]
     Indication: RHEUMATOID ARTHRITIS
     Dosage: 50 MG, QWK
     Route: 058
     Dates: start: 20040701
  4. ENBREL [Suspect]
     Indication: OSTEOARTHRITIS
  5. BACLOFEN [Concomitant]
     Dosage: UNK
  6. ENBREL [Suspect]
     Indication: FIBROMYALGIA

REACTIONS (14)
  - DEPRESSION [None]
  - FATIGUE [None]
  - SINUSITIS [None]
  - SPINAL FUSION SURGERY [None]
  - SURGERY [None]
  - BLADDER PAIN [None]
  - APHASIA [None]
  - ARTHRALGIA [None]
  - DELIRIUM [None]
  - HYPERAESTHESIA [None]
  - PAIN [None]
  - DYSKINESIA [None]
  - VISUAL ACUITY REDUCED [None]
  - OBESITY [None]
